FAERS Safety Report 15491393 (Version 1)
Quarter: 2018Q4

REPORT INFORMATION
  Report Type: Report from Study
  Country: None (occurrence: DE)
  Receive Date: 20181012
  Receipt Date: 20181012
  Transmission Date: 20190205
  Serious: Yes (Hospitalization)
  Sender: FDA-Public Use
  Company Number: DE-ABBVIE-18K-062-2513018-00

PATIENT
  Sex: Female

DRUGS (2)
  1. HUMIRA [Suspect]
     Active Substance: ADALIMUMAB
     Route: 058
  2. HUMIRA [Suspect]
     Active Substance: ADALIMUMAB
     Indication: CROHN^S DISEASE
     Route: 058
     Dates: start: 20100517

REACTIONS (7)
  - Dysphonia [Not Recovered/Not Resolved]
  - Product prescribing issue [Recovered/Resolved]
  - Oesophageal disorder [Not Recovered/Not Resolved]
  - Muscle rigidity [Unknown]
  - Dysphagia [Not Recovered/Not Resolved]
  - Nuchal rigidity [Recovering/Resolving]
  - Product dispensing error [Recovered/Resolved]

NARRATIVE: CASE EVENT DATE: 2017
